FAERS Safety Report 11722232 (Version 1)
Quarter: 2015Q4

REPORT INFORMATION
  Report Type: Spontaneous
  Country: US (occurrence: None)
  Receive Date: 20151110
  Receipt Date: 20151110
  Transmission Date: 20160304
  Serious: Yes (Life-Threatening, Hospitalization, Disabling, Other)
  Sender: FDA-Public Use
  Company Number: None

PATIENT
  Age: 54 Year
  Sex: Male
  Weight: 78.47 kg

DRUGS (10)
  1. ALBUTEROL HFA (PROVENTIL HFA, VENTOLIN HFA) [Concomitant]
  2. INSULIN GLARGINE (LANTUS SOLOSTAR) [Concomitant]
  3. LIPITOR [Concomitant]
     Active Substance: ATORVASTATIN CALCIUM
  4. BLOOD-GLUCOSE METER (ACCU-CHEK AVIVA MONITORING KIT) [Concomitant]
  5. FLUTICASONE [Concomitant]
     Active Substance: FLUTICASONE\FLUTICASONE PROPIONATE
  6. VALSARTAN (DIOVAN) [Concomitant]
  7. HARVONI [Suspect]
     Active Substance: LEDIPASVIR\SOFOSBUVIR
     Indication: HEPATITIS C
     Route: 048
     Dates: start: 20151028, end: 20151104
  8. VERAPAMIL ER [Concomitant]
     Active Substance: VERAPAMIL HYDROCHLORIDE
  9. BENZONATATE (TESSALON PERLE) [Concomitant]
  10. NORVASC [Concomitant]
     Active Substance: AMLODIPINE BESYLATE

REACTIONS (6)
  - Confusional state [None]
  - Hypertension [None]
  - Headache [None]
  - Cerebral infarction [None]
  - Hemiparesis [None]
  - Hypoaesthesia [None]

NARRATIVE: CASE EVENT DATE: 20151104
